FAERS Safety Report 21521649 (Version 1)
Quarter: 2022Q4

REPORT INFORMATION
  Report Type: Report from Study
  Country: CA (occurrence: CA)
  Receive Date: 20221028
  Receipt Date: 20221028
  Transmission Date: 20230112
  Serious: Yes (Other)
  Sender: FDA-Public Use
  Company Number: CA-PFIZER INC-202201256365

PATIENT
  Age: 56 Year
  Sex: Male

DRUGS (8)
  1. RITUXIMAB [Suspect]
     Active Substance: RITUXIMAB
     Indication: Vasculitis
     Dosage: 700 MG, 1 EVERY 4 WEEKS
     Route: 042
  2. ACETAMINOPHEN [Concomitant]
     Active Substance: ACETAMINOPHEN
     Dosage: 650 MG
     Route: 065
  3. BENADRYL [Concomitant]
     Active Substance: DIPHENHYDRAMINE HYDROCHLORIDE
     Dosage: 50 MG
     Route: 065
  4. METHYLPREDNISOLONE [Concomitant]
     Active Substance: METHYLPREDNISOLONE
     Dosage: 100 MG
     Route: 042
  5. PREDNISONE [Concomitant]
     Active Substance: PREDNISONE
  6. RISEDRONATE SODIUM [Concomitant]
     Active Substance: RISEDRONATE SODIUM
  7. SEPTRA [Concomitant]
     Active Substance: SULFAMETHOXAZOLE\TRIMETHOPRIM
  8. SULFATRIM [Concomitant]
     Active Substance: SULFAMETHOXAZOLE\TRIMETHOPRIM

REACTIONS (14)
  - Blood creatine increased [Unknown]
  - Crystal urine present [Unknown]
  - Glomerular filtration rate abnormal [Unknown]
  - Glucose urine present [Unknown]
  - Granulocyte count increased [Unknown]
  - Haematocrit increased [Unknown]
  - Lymphocyte count decreased [Unknown]
  - Mean cell haemoglobin increased [Unknown]
  - Neutrophil count increased [Unknown]
  - Renal impairment [Unknown]
  - Urine abnormality [Unknown]
  - Urine ketone body present [Unknown]
  - White blood cell count increased [Unknown]
  - Product use in unapproved indication [Unknown]
